FAERS Safety Report 7724399-3 (Version None)
Quarter: 2011Q3

REPORT INFORMATION
  Report Type: 
  Country: None (occurrence: None)
  Receive Date: 20110901
  Receipt Date: 20110829
  Transmission Date: 20111222
  Serious: Yes (Other)
  Sender: FDA-Public Use
  Company Number: BR-PFIZER INC-2011200766

PATIENT
  Age: 45 Year
  Sex: Female
  Weight: 78 kg

DRUGS (4)
  1. CLONAZEPAM [Concomitant]
     Indication: DEPRESSION
     Dosage: 1 MG PER DAY
     Dates: start: 20100101
  2. LYRICA [Suspect]
     Indication: FIBROMYALGIA
     Dosage: 150 MG PER DAY
     Route: 048
     Dates: start: 20110712
  3. ALENTHUS XR [Concomitant]
     Indication: DEPRESSION
     Dosage: 75 MG PER DAY
     Dates: start: 20110201
  4. LOSARTAN [Concomitant]
     Indication: HYPERTENSION
     Dosage: 100 MG PER DAY
     Dates: start: 20110201

REACTIONS (6)
  - SEDATION [None]
  - DRY MOUTH [None]
  - DECREASED APPETITE [None]
  - DIZZINESS [None]
  - FIBROMYALGIA [None]
  - BALANCE DISORDER [None]
